FAERS Safety Report 4318347-6 (Version None)
Quarter: 2004Q1

REPORT INFORMATION
  Report Type: 
  Country: None (occurrence: None)
  Receive Date: 20040315
  Receipt Date: 20040302
  Transmission Date: 20041129
  Serious: Yes (Hospitalization)
  Sender: FDA-Public Use
  Company Number: US-JNJFOC-20031102772

PATIENT
  Age: 55 Year
  Sex: Female

DRUGS (7)
  1. REMICADE [Suspect]
     Indication: RHEUMATOID ARTHRITIS
     Dosage: FOR APPROXIMATELY NINE MONTHS
  2. AMPHOTERICIN B [Suspect]
     Indication: HISTOPLASMOSIS
     Dosage: 1 MG/KG
  3. METHOTREXATE [Concomitant]
  4. NAPROSYN [Concomitant]
  5. PLAQUENIL [Concomitant]
  6. FOLIC ACID [Concomitant]
  7. LOTREL (LOTREL) [Concomitant]

REACTIONS (27)
  - ABDOMINAL TENDERNESS [None]
  - ACUTE PULMONARY HISTOPLASMOSIS [None]
  - AGITATION [None]
  - ALANINE AMINOTRANSFERASE INCREASED [None]
  - ANAEMIA [None]
  - AORTIC DILATATION [None]
  - AORTIC VALVE INCOMPETENCE [None]
  - ASPARTATE AMINOTRANSFERASE INCREASED [None]
  - BLOOD ALKALINE PHOSPHATASE INCREASED [None]
  - BLOOD BILIRUBIN INCREASED [None]
  - BLOOD GLUCOSE INCREASED [None]
  - CALCIUM IONISED DECREASED [None]
  - DISSEMINATED TUBERCULOSIS [None]
  - GAMMA-GLUTAMYLTRANSFERASE INCREASED [None]
  - HAEMATOCRIT DECREASED [None]
  - HEART RATE INCREASED [None]
  - HISTOPLASMOSIS DISSEMINATED [None]
  - HYPOKALAEMIA [None]
  - HYPOXIA [None]
  - LUNG INFILTRATION [None]
  - MITRAL VALVE INCOMPETENCE [None]
  - PERICARDIAL EFFUSION [None]
  - PLEURAL EFFUSION [None]
  - PYREXIA [None]
  - QRS AXIS ABNORMAL [None]
  - RESPIRATORY FAILURE [None]
  - VOMITING [None]
